FAERS Safety Report 5380745-X (Version None)
Quarter: 2007Q3

REPORT INFORMATION
  Report Type: 
  Country: None (occurrence: None)
  Receive Date: 20070706
  Receipt Date: 20070622
  Transmission Date: 20080115
  Serious: Yes (Hospitalization)
  Sender: FDA-Public Use
  Company Number: JP-AMGEN-US227193

PATIENT
  Sex: Female
  Weight: 47 kg

DRUGS (4)
  1. ENBREL [Suspect]
     Indication: RHEUMATOID ARTHRITIS
     Route: 058
     Dates: start: 20051017
  2. ACTONEL [Concomitant]
     Dosage: UNSPECIFIED
     Route: 048
  3. BONALON [Concomitant]
     Dosage: UNKNOWN
     Route: 048
  4. METHOTREXATE [Concomitant]
     Indication: RHEUMATOID ARTHRITIS
     Route: 048

REACTIONS (2)
  - FEMORAL NECK FRACTURE [None]
  - WOUND INFECTION STAPHYLOCOCCAL [None]
